FAERS Safety Report 12862564 (Version 1)
Quarter: 2016Q4

REPORT INFORMATION
  Report Type: Report from Study
  Country: US (occurrence: US)
  Receive Date: 20161019
  Receipt Date: 20161019
  Transmission Date: 20170207
  Serious: Yes (Hospitalization)
  Sender: FDA-Public Use
  Company Number: US-B.I. PHARMACEUTICALS,INC./RIDGEFIELD-2016-BI-57211BP

PATIENT
  Sex: Female

DRUGS (1)
  1. OFEV [Suspect]
     Active Substance: NINTEDANIB
     Indication: IDIOPATHIC PULMONARY FIBROSIS
     Route: 048
     Dates: start: 20160824

REACTIONS (11)
  - Pneumonia [Unknown]
  - Nephropathy [Unknown]
  - Muscle injury [Unknown]
  - Vomiting [Unknown]
  - Chills [Unknown]
  - Nausea [Unknown]
  - Bronchitis [Unknown]
  - Diverticulitis [Unknown]
  - Malaise [Unknown]
  - Back pain [Unknown]
  - Retching [Unknown]
